FAERS Safety Report 4848874-4 (Version None)
Quarter: 2005Q4

REPORT INFORMATION
  Report Type: 
  Country: None (occurrence: None)
  Receive Date: 20051208
  Receipt Date: 20051205
  Transmission Date: 20060501
  Serious: Yes (Life-Threatening, Hospitalization)
  Sender: FDA-Public Use
  Company Number: CA-MERCK-0512CAN00008

PATIENT
  Age: 79 Year
  Sex: Male

DRUGS (2)
  1. PROSCAR [Suspect]
     Indication: BENIGN PROSTATIC HYPERPLASIA
     Route: 048
     Dates: start: 20050228
  2. PROSCAR [Suspect]
     Indication: URINARY TRACT DISORDER
     Route: 048
     Dates: start: 20050228

REACTIONS (1)
  - MYOCARDIAL INFARCTION [None]
